FAERS Safety Report 17075880 (Version 2)
Quarter: 2019Q4

REPORT INFORMATION
  Report Type: Report from Study
  Country: EC (occurrence: EC)
  Receive Date: 20191126
  Receipt Date: 20191210
  Transmission Date: 20200122
  Serious: Yes (Hospitalization, Other)
  Sender: FDA-Public Use
  Company Number: PHHY2017EC156893

PATIENT
  Age: 47 Year
  Sex: Female
  Weight: 54 kg

DRUGS (3)
  1. SANDOSTATIN LAR DEPOT [Suspect]
     Active Substance: OCTREOTIDE ACETATE
     Indication: ACROMEGALY
     Dosage: 20 MG, QMO (ONCE A MONTH)
     Route: 030
     Dates: start: 20170224, end: 20190926
  2. INSULIN [Concomitant]
     Active Substance: INSULIN NOS
     Indication: DIABETES MELLITUS
     Dosage: UNK, TID
     Route: 058
     Dates: start: 2015
  3. SANDOSTATIN LAR DEPOT [Suspect]
     Active Substance: OCTREOTIDE ACETATE
     Dosage: UNK
     Route: 030
     Dates: start: 201911

REACTIONS (19)
  - Muscle disorder [Not Recovered/Not Resolved]
  - Abscess limb [Not Recovered/Not Resolved]
  - Pain in extremity [Not Recovered/Not Resolved]
  - Localised infection [Recovered/Resolved]
  - Conjunctivitis [Recovering/Resolving]
  - Eye discharge [Recovering/Resolving]
  - Peripheral swelling [Recovered/Resolved]
  - Blood glucose increased [Not Recovered/Not Resolved]
  - Ocular hyperaemia [Recovering/Resolving]
  - Anxiety [Not Recovered/Not Resolved]
  - Hypertension [Unknown]
  - Thyroid disorder [Unknown]
  - Abscess [Recovered/Resolved]
  - Hyperphagia [Not Recovered/Not Resolved]
  - Limb discomfort [Not Recovered/Not Resolved]
  - Gastritis [Unknown]
  - Dysstasia [Not Recovered/Not Resolved]
  - Blindness [Not Recovered/Not Resolved]
  - Eye inflammation [Recovering/Resolving]

NARRATIVE: CASE EVENT DATE: 20180213
